FAERS Safety Report 25676026 (Version 2)
Quarter: 2025Q3

REPORT INFORMATION
  Report Type: Spontaneous
  Country: US (occurrence: US)
  Receive Date: 20250813
  Receipt Date: 20250923
  Transmission Date: 20251020
  Serious: No
  Sender: PFIZER
  Company Number: US-PFIZER INC-202500159573

PATIENT
  Age: 69 Year
  Sex: Female
  Weight: 61.23 kg

DRUGS (1)
  1. ESTRING [Suspect]
     Active Substance: ESTRADIOL
     Indication: Vulvovaginal discomfort
     Dosage: UNK, EVERY 3 MONTHS (7.5MCG/24 HOURS, ONCE EVERY 3 MONTHS)
     Route: 067

REACTIONS (1)
  - Therapeutic product effect incomplete [Unknown]
